FAERS Safety Report 10651595 (Version 1)
Quarter: 2014Q4

REPORT INFORMATION
  Report Type: Spontaneous
  Country: US (occurrence: None)
  Receive Date: 20141212
  Receipt Date: 20141212
  Transmission Date: 20150529
  Serious: Yes (Hospitalization)
  Sender: FDA-Public Use
  Company Number: None

PATIENT
  Age: 59 Year
  Sex: Female
  Weight: 166 kg

DRUGS (17)
  1. METFORMIN [Concomitant]
     Active Substance: METFORMIN HYDROCHLORIDE
  2. SIMVASTATIN. [Concomitant]
     Active Substance: SIMVASTATIN
  3. DOXYCYCLINE. [Concomitant]
     Active Substance: DOXYCYCLINE
  4. LORAZEPAM. [Concomitant]
     Active Substance: LORAZEPAM
  5. ZOFRAN [Concomitant]
     Active Substance: ONDANSETRON HYDROCHLORIDE
  6. OXYCODONE [Concomitant]
     Active Substance: OXYCODONE
  7. XARELTO [Concomitant]
     Active Substance: RIVAROXABAN
  8. ASPIRIN. [Concomitant]
     Active Substance: ASPIRIN
  9. CREON [Concomitant]
     Active Substance: PANCRELIPASE AMYLASE\PANCRELIPASE LIPASE\PANCRELIPASE PROTEASE
  10. GEMCITABINE [Concomitant]
     Active Substance: GEMCITABINE\GEMCITABINE HYDROCHLORIDE
  11. XARELTO [Suspect]
     Active Substance: RIVAROXABAN
     Indication: DEEP VEIN THROMBOSIS
     Dosage: 1 TAB, BID, ORAL
     Route: 048
     Dates: start: 20141110, end: 20141208
  12. FUROSEMIDE. [Concomitant]
     Active Substance: FUROSEMIDE
  13. K-DUR [Concomitant]
     Active Substance: POTASSIUM CHLORIDE
  14. LEVEMIR [Concomitant]
     Active Substance: INSULIN DETEMIR
  15. LEVOTHYROXINE [Concomitant]
     Active Substance: LEVOTHYROXINE
  16. MULTIVITAMIN [Concomitant]
     Active Substance: VITAMINS
  17. OXYCONTIN [Concomitant]
     Active Substance: OXYCODONE HYDROCHLORIDE

REACTIONS (1)
  - Pulmonary embolism [None]

NARRATIVE: CASE EVENT DATE: 20141208
